FAERS Safety Report 5194458-0 (Version None)
Quarter: 2006Q4

REPORT INFORMATION
  Report Type: 
  Country: None (occurrence: None)
  Receive Date: 20061222
  Receipt Date: 20061215
  Transmission Date: 20070319
  Serious: Yes (Hospitalization)
  Sender: FDA-Public Use
  Company Number: 233988

PATIENT
  Age: 70 Year
  Sex: Male
  Weight: 80.8 kg

DRUGS (7)
  1. AVASTIN [Suspect]
     Indication: DRUG USE FOR UNKNOWN INDICATION
     Dosage: 5 MG/KG
  2. OXALIPLATIN [Concomitant]
  3. XELODA [Concomitant]
  4. VICODIN [Concomitant]
  5. PRILOSEC [Concomitant]
  6. K-DUR (POTASSIOUM CHLORIDE) [Concomitant]
  7. HYDROCHLOROTHIAZIDE [Concomitant]

REACTIONS (1)
  - NECROTISING FASCIITIS [None]
